FAERS Safety Report 5204392-5 (Version None)
Quarter: 2007Q1

REPORT INFORMATION
  Report Type: 
  Country: None (occurrence: None)
  Receive Date: 20070110
  Receipt Date: 20060123
  Transmission Date: 20070707
  Serious: No
  Sender: FDA-Public Use
  Company Number: US-BRISTOL-MYERS SQUIBB COMPANY-13315791

PATIENT
  Sex: Female

DRUGS (4)
  1. ABILIFY [Suspect]
     Indication: BIPOLAR II DISORDER
     Dosage: ABILIFY: STARTED ON 5MG QD 08-FEB-05; INCREASED TO 10MG QD 22-MAR-05; INCREASED TO 15MG QD MAY 2005.
     Dates: start: 20050501, end: 20051011
  2. TOPAMAX [Concomitant]
  3. EFFEXOR [Concomitant]
  4. ATIVAN [Concomitant]

REACTIONS (3)
  - DYSGRAPHIA [None]
  - SALIVARY HYPERSECRETION [None]
  - TARDIVE DYSKINESIA [None]
